FAERS Safety Report 14990884 (Version 1)
Quarter: 2018Q2

REPORT INFORMATION
  Report Type: Spontaneous
  Country: ES (occurrence: ES)
  Receive Date: 20180608
  Receipt Date: 20180608
  Transmission Date: 20180711
  Serious: Yes (Other)
  Sender: FDA-Public Use
  Company Number: ES-009507513-1801ESP002514

PATIENT
  Age: 50 Year
  Sex: Female

DRUGS (1)
  1. ZEPATIER [Suspect]
     Active Substance: ELBASVIR\GRAZOPREVIR
     Indication: HEPATITIS C
     Dosage: 1 TABLET / EVERY 24 H
     Route: 048
     Dates: start: 20171109, end: 20180131

REACTIONS (2)
  - Genitourinary symptom [Not Recovered/Not Resolved]
  - Urinary tract operation [Not Recovered/Not Resolved]
